FAERS Safety Report 5396416-X (Version None)
Quarter: 2007Q3

REPORT INFORMATION
  Report Type: 
  Country: None (occurrence: None)
  Receive Date: 20070725
  Receipt Date: 20070716
  Transmission Date: 20080115
  Serious: Yes (Hospitalization)
  Sender: FDA-Public Use
  Company Number: US-AVENTIS-200716479GDDC

PATIENT
  Age: 65 Year
  Sex: Male
  Weight: 74.4 kg

DRUGS (18)
  1. TAXOTERE [Suspect]
     Dosage: DOSE: UNK
     Route: 042
  2. MONOCLONAL ANTIBODIES [Suspect]
     Route: 042
     Dates: start: 20070612
  3. HYDROCHLOROTHIAZIDE [Suspect]
     Dosage: DOSE: UNK
  4. IRBESARTAN [Concomitant]
     Dosage: DOSE: UNK
     Route: 048
  5. ASPIRIN [Concomitant]
     Route: 048
  6. VENLAFAXIINE HCL [Concomitant]
     Dosage: DOSE: UNK
     Route: 048
  7. OXYCODONE HCL [Concomitant]
     Dosage: DOSE: 5 MG QD
     Route: 048
  8. ZOLEDRONIC ACID [Concomitant]
     Dosage: DOSE: UNK
     Route: 042
  9. PREDNISONE [Concomitant]
     Route: 048
  10. DECADRON [Concomitant]
     Dosage: DOSE: 4 MG X 2
     Route: 048
  11. EFFEXOR [Concomitant]
     Dosage: DOSE: UNK
     Route: 048
  12. AMBIEN [Concomitant]
     Dosage: DOSE: 12.5 MG X 2
     Route: 048
  13. COMPAZINE [Concomitant]
     Dosage: DOSE: UNK
     Route: 048
  14. LIPITOR [Concomitant]
     Dosage: DOSE: UNK
     Route: 048
  15. AVAPRO [Concomitant]
     Route: 048
  16. VIT D [Concomitant]
     Route: 048
  17. ASCORBIC ACID [Concomitant]
     Route: 048
  18. TUMS                               /00108001/ [Concomitant]
     Dosage: DOSE QUANTITY: 1
     Route: 048

REACTIONS (4)
  - DEHYDRATION [None]
  - HYPONATRAEMIA [None]
  - HYPOTENSION [None]
  - SYNCOPE [None]
